FAERS Safety Report 6371517-8 (Version None)
Quarter: 2009Q3

REPORT INFORMATION
  Report Type: 
  Country: None (occurrence: None)
  Receive Date: 20090923
  Receipt Date: 20071129
  Transmission Date: 20100115
  Serious: Yes (Other)
  Sender: FDA-Public Use
  Company Number: US-ASTRAZENECA-2007UW21670

PATIENT
  Age: 555 Month
  Sex: Female

DRUGS (15)
  1. SEROQUEL [Suspect]
     Indication: DEPRESSION
     Route: 048
     Dates: start: 20020301, end: 20050601
  2. SEROQUEL [Suspect]
     Indication: BIPOLAR DISORDER
     Route: 048
     Dates: start: 20020301, end: 20050601
  3. SEROQUEL [Suspect]
     Dosage: 100-300 MG
     Route: 048
     Dates: start: 20030411
  4. SEROQUEL [Suspect]
     Dosage: 100-300 MG
     Route: 048
     Dates: start: 20030411
  5. LEXAPRO [Concomitant]
     Dosage: 10 MG TO 20 MG
     Route: 065
  6. LORAZEPAM [Concomitant]
     Route: 065
  7. XANAX [Concomitant]
     Dosage: 0.5 MG TO 1 MG
     Route: 065
  8. ESKALITH [Concomitant]
     Route: 065
  9. RISPERDAL [Concomitant]
     Route: 065
  10. HYDROCODONE [Concomitant]
     Route: 065
  11. AMBIEN [Concomitant]
     Route: 065
  12. PROZAC [Concomitant]
     Route: 065
  13. ZOLOFT [Concomitant]
     Route: 065
  14. RESTORIL [Concomitant]
     Route: 065
  15. REMERON [Concomitant]
     Route: 065

REACTIONS (6)
  - BIPOLAR DISORDER [None]
  - DIABETES MELLITUS [None]
  - DIARRHOEA [None]
  - HYPERTENSION [None]
  - SLEEP APNOEA SYNDROME [None]
  - SUICIDAL IDEATION [None]
